FAERS Safety Report 4633943-4 (Version None)
Quarter: 2005Q1

REPORT INFORMATION
  Report Type: 
  Country: None (occurrence: None)
  Receive Date: 20050325
  Receipt Date: 20041228
  Transmission Date: 20050727
  Serious: No
  Sender: FDA-Public Use
  Company Number: USA041287085

PATIENT
  Age: 69 Year
  Sex: Female
  Weight: 55 kg

DRUGS (8)
  1. FORTEO [Suspect]
     Indication: OSTEOPOROSIS
     Dosage: 20 UG/1 DAY
     Dates: start: 20020101
  2. PREDNISONE [Concomitant]
  3. VITAMINS [Concomitant]
  4. HYDROCHLOROTHIAZIDE [Concomitant]
  5. LASIX [Concomitant]
  6. ZOLOFT [Concomitant]
  7. CALTRATE 600 PLUS VITAMIN D [Concomitant]
  8. OXYCONTIN [Concomitant]

REACTIONS (7)
  - BURNING SENSATION [None]
  - DIZZINESS [None]
  - DRY SKIN [None]
  - ERYTHEMA [None]
  - OEDEMA PERIPHERAL [None]
  - RASH SCALY [None]
  - TEMPORAL ARTERITIS [None]
